FAERS Safety Report 17716132 (Version 3)
Quarter: 2022Q1

REPORT INFORMATION
  Report Type: Spontaneous
  Country: CH (occurrence: CH)
  Receive Date: 20200428
  Receipt Date: 20220131
  Transmission Date: 20220423
  Serious: Yes (Death, Hospitalization, Other)
  Sender: FDA-Public Use
  Company Number: CH-SM-2020-12540

PATIENT
  Age: 77 Year
  Sex: Male
  Weight: 56 kg

DRUGS (7)
  1. ONDANSETRON [Suspect]
     Active Substance: ONDANSETRON
     Dosage: ONDANSETRON MEPHA ORO 4 MG 2-3 PER DAY, BEFORE MEALS
     Route: 065
     Dates: start: 20200327
  2. XELODA [Suspect]
     Active Substance: CAPECITABINE
     Dosage: 1500 MG 2X PER DAY OVER 14 DAYS, FOLLOWED BY A 7-DAY DOSE SUSPENSION
     Route: 065
     Dates: start: 20200218, end: 20200302
  3. XELODA [Suspect]
     Active Substance: CAPECITABINE
     Dosage: CYCLE 2, DAY 1: 10 MARCH 2020. CEASED ON 23 MARCH 2020 (DAY 14)
     Route: 065
     Dates: start: 20200310, end: 20200323
  4. IMODIUM [Suspect]
     Active Substance: LOPERAMIDE HYDROCHLORIDE
     Dosage: 8 MILLIGRAM DAILY; LING. ACUTE
     Route: 065
     Dates: start: 20200326, end: 20200329
  5. OPIUM TINCTURE [Suspect]
     Active Substance: MORPHINE
     Dosage: 1%/10 MG DROPS 3X 0.5 ML
     Route: 065
     Dates: start: 20200329
  6. BUTYLSCOPOLAMINE BROMIDE [Concomitant]
     Active Substance: BUTYLSCOPOLAMINE BROMIDE
     Dates: start: 20200326
  7. FRAGMIN [Concomitant]
     Active Substance: DALTEPARIN SODIUM
     Dates: start: 20200326, end: 20200329

REACTIONS (6)
  - Death [Fatal]
  - Ileus paralytic [Not Recovered/Not Resolved]
  - Pneumatosis intestinalis [Not Recovered/Not Resolved]
  - Diarrhoea [Not Recovered/Not Resolved]
  - Oesophagitis [Not Recovered/Not Resolved]
  - Palmar-plantar erythrodysaesthesia syndrome [Recovered/Resolved]

NARRATIVE: CASE EVENT DATE: 20200318
